FAERS Safety Report 9413565 (Version 2)
Quarter: 2013Q3

REPORT INFORMATION
  Report Type: Spontaneous
  Country: US (occurrence: US)
  Receive Date: 20130627
  Receipt Date: 20130806
  Transmission Date: 20140515
  Serious: Yes (Life-Threatening, Hospitalization, Other)
  Sender: FDA-Public Use
  Company Number: 2012P1052200

PATIENT
  Age: 45 Year
  Sex: Male

DRUGS (2)
  1. INFUMORPH [Suspect]
     Indication: INTERVERTEBRAL DISC DEGENERATION
     Route: 037
     Dates: end: 20120723
  2. INFUMORPH [Suspect]
     Indication: PAIN
     Route: 037
     Dates: end: 20120723

REACTIONS (17)
  - Drug effect incomplete [None]
  - Mental status changes [None]
  - Pain [None]
  - Drug withdrawal syndrome [None]
  - Medical device complication [None]
  - Underdose [None]
  - Malaise [None]
  - Urinary retention [None]
  - Constipation [None]
  - Incontinence [None]
  - Paraesthesia [None]
  - Diplegia [None]
  - Gait disturbance [None]
  - Nerve injury [None]
  - Erectile dysfunction [None]
  - Medical induction of coma [None]
  - Device damage [None]
